FAERS Safety Report 5028645-9 (Version None)
Quarter: 2006Q2

REPORT INFORMATION
  Report Type: 
  Country: None (occurrence: None)
  Receive Date: 20060619
  Receipt Date: 20060522
  Transmission Date: 20061013
  Serious: Yes (Hospitalization)
  Sender: FDA-Public Use
  Company Number: 2006UW10001

PATIENT
  Age: 57 Year
  Sex: Male

DRUGS (4)
  1. CRESTOR [Suspect]
     Indication: BLOOD CHOLESTEROL INCREASED
     Route: 048
     Dates: start: 20060427, end: 20060507
  2. CLOZAPINE [Suspect]
  3. CLOZAPINE [Concomitant]
  4. PAROXETINE HCL [Concomitant]

REACTIONS (7)
  - BONE MARROW FAILURE [None]
  - COMA [None]
  - CONVULSION [None]
  - DRUG INTERACTION [None]
  - HEPATIC STEATOSIS [None]
  - HEPATITIS [None]
  - PANCYTOPENIA [None]
